FAERS Safety Report 9366001 (Version 1)
Quarter: 2013Q2

REPORT INFORMATION
  Report Type: Report from Study
  Country: US (occurrence: US)
  Receive Date: 20130625
  Receipt Date: 20130625
  Transmission Date: 20140414
  Serious: Yes (Death)
  Sender: FDA-Public Use
  Company Number: US-BAYER-2013-077197

PATIENT
  Age: 47 Year
  Sex: Female

DRUGS (17)
  1. SORAFENIB (RAF KINASE INHIBITOR) [Suspect]
     Indication: BREAST CANCER METASTATIC
     Dosage: 400 MG, BID
     Route: 048
     Dates: start: 20080513
  2. SORAFENIB (RAF KINASE INHIBITOR) [Suspect]
     Indication: METASTASES TO BONE
  3. SORAFENIB (RAF KINASE INHIBITOR) [Suspect]
     Indication: METASTASES TO PERITONEUM
  4. GEMCITABINE [Suspect]
     Dosage: DAILY DOSE 1000 MG/M2
     Route: 042
     Dates: start: 20080513, end: 20080513
  5. GEMCITABINE [Suspect]
     Dosage: DAILY DOSE 1000 MG/M2
     Route: 042
     Dates: start: 20080520, end: 20080520
  6. GEMCITABINE [Suspect]
     Dosage: DAILY DOSE 1000 MG/M2
     Route: 042
     Dates: start: 20080603, end: 20080603
  7. ENSURE [MINERALS NOS,VITAMINS NOS] [Concomitant]
  8. ZOMETA [Concomitant]
  9. LEXAPRO [Concomitant]
  10. KLONOPIN [Concomitant]
  11. AMBIEN [Concomitant]
  12. ATENOLOL [Concomitant]
  13. COMPAZINE [Concomitant]
     Dosage: UNK UNK, PRN
  14. LACTULOSE [Concomitant]
     Dosage: UNK UNK, PRN
  15. LIDOCAINE [Concomitant]
     Dosage: UNK UNK, PRN
  16. OXYCONTIN [Concomitant]
     Dosage: UNK UNK, PRN
  17. OXYCODONE [Concomitant]

REACTIONS (1)
  - Cardiac arrest [Fatal]
